FAERS Safety Report 14354584 (Version 2)
Quarter: 2018Q1

REPORT INFORMATION
  Report Type: Spontaneous
  Country: US (occurrence: US)
  Receive Date: 20180105
  Receipt Date: 20180129
  Transmission Date: 20180509
  Serious: Yes (Other)
  Sender: FDA-Public Use
  Company Number: US-DRREDDYS-USA/USA/17/0094947

PATIENT
  Age: 6 Year
  Sex: Male

DRUGS (5)
  1. GUANFACINE HYDROCHLORIDE. [Suspect]
     Active Substance: GUANFACINE HYDROCHLORIDE
     Indication: ATTENTION DEFICIT/HYPERACTIVITY DISORDER
     Route: 065
  2. NALTREXONE [Concomitant]
     Active Substance: NALTREXONE
     Indication: INTENTIONAL SELF-INJURY
     Route: 065
  3. NALTREXONE [Concomitant]
     Active Substance: NALTREXONE
     Route: 065
  4. RISPERIDONE TABLETS [Suspect]
     Active Substance: RISPERIDONE
     Indication: INTENTIONAL SELF-INJURY
     Route: 065
  5. RISPERIDONE TABLETS [Suspect]
     Active Substance: RISPERIDONE
     Route: 065

REACTIONS (3)
  - Drug intolerance [Unknown]
  - Intentional self-injury [Recovering/Resolving]
  - Condition aggravated [Recovering/Resolving]
